FAERS Safety Report 11024724 (Version 1)
Quarter: 2015Q2

REPORT INFORMATION
  Report Type: Spontaneous
  Country: US (occurrence: None)
  Receive Date: 20150410
  Receipt Date: 20150410
  Transmission Date: 20150821
  Serious: Yes (Other)
  Sender: FDA-Public Use
  Company Number: 2015SMT00039

PATIENT
  Age: 54 Year
  Sex: Female

DRUGS (10)
  1. COLLAGENASE SANTYL [Suspect]
     Active Substance: COLLAGENASE CLOSTRIDIUM HISTOLYTICUM
     Indication: SKIN ULCER
  2. CRESTOR [Concomitant]
     Active Substance: ROSUVASTATIN CALCIUM
  3. ADVAIR (FLUTICASONE PROPRIONATE AND SALMETEROL) [Concomitant]
  4. AMBIEN (ZOLPIDEM) [Concomitant]
  5. FUROSEMIDE. [Concomitant]
     Active Substance: FUROSEMIDE
  6. DIOVAN [Concomitant]
     Active Substance: VALSARTAN
  7. NORCO (HYDRCODONE AND ACETAMINOPHEN) [Concomitant]
  8. PROAIR (ALBUTEROL HFA) [Concomitant]
  9. COUMADIN (WARFARIN) [Concomitant]
  10. PREDNISONE. [Concomitant]
     Active Substance: PREDNISONE

REACTIONS (4)
  - Wound necrosis [None]
  - Application site discolouration [None]
  - Skin exfoliation [None]
  - Skin ulcer [None]

NARRATIVE: CASE EVENT DATE: 20150325
